FAERS Safety Report 9267375 (Version 1)
Quarter: 2013Q2

REPORT INFORMATION
  Report Type: Spontaneous
  Country: US (occurrence: US)
  Receive Date: 20130502
  Receipt Date: 20130502
  Transmission Date: 20140414
  Serious: No
  Sender: FDA-Public Use
  Company Number: US-009507513-1305USA000716

PATIENT
  Age: 64 Year
  Sex: Female

DRUGS (6)
  1. JANUMET [Suspect]
     Indication: TYPE 2 DIABETES MELLITUS
     Dosage: 50/1000 MILLIGRAMS, BID
     Route: 048
     Dates: start: 20130417
  2. GLUCOPHAGE [Concomitant]
  3. NORVASC [Concomitant]
  4. LIPITOR [Concomitant]
  5. HYDROCHLOROTHIAZIDE [Concomitant]
  6. CLARINEX [Concomitant]

REACTIONS (3)
  - Blood pressure increased [Not Recovered/Not Resolved]
  - Nausea [Not Recovered/Not Resolved]
  - Headache [Not Recovered/Not Resolved]
